FAERS Safety Report 20855815 (Version 1)
Quarter: 2022Q2

REPORT INFORMATION
  Report Type: Spontaneous
  Country: US (occurrence: None)
  Receive Date: 20220520
  Receipt Date: 20220520
  Transmission Date: 20220721
  Serious: Yes (Hospitalization)
  Sender: FDA-Public Use
  Company Number: None

PATIENT
  Sex: Female

DRUGS (27)
  1. OCTREOTIDE [Suspect]
     Active Substance: OCTREOTIDE
     Indication: Neuroendocrine tumour
     Dosage: 100 MCG/ML? INJECT 100 MCG UNDER THE SKIN (SUBCUTANEOUS INJECTION) THREE TIMES DAILY
     Route: 058
     Dates: start: 20210212
  2. ALPRAZOLAM TAB [Concomitant]
  3. AMITRIPTYLIN TAB [Concomitant]
  4. AMLODIPINE TAB [Concomitant]
  5. CARVEDILOL [Concomitant]
     Active Substance: CARVEDILOL
  6. CHOLESTYRAM POW [Concomitant]
  7. CREON CAP [Concomitant]
  8. CYANOCOBALAM INJ [Concomitant]
  9. DICYCLOMINE CAP [Concomitant]
  10. HYDRALAZINE TAB [Concomitant]
  11. HYDROCODONE CAP [Concomitant]
  12. HYDROXYCHLOR TAB [Concomitant]
  13. HYOSCYAMINE TAB [Concomitant]
  14. IRON TAB [Concomitant]
  15. LEFLUNOMIDE [Concomitant]
     Active Substance: LEFLUNOMIDE
  16. LEVOTHYROXINE [Concomitant]
     Active Substance: LEVOTHYROXINE
  17. LOSARTAN POT TAB [Concomitant]
  18. MAGNESIUM CAP [Concomitant]
  19. MORPHINE SUL TAB [Concomitant]
  20. MULTIVITAMIN TAB [Concomitant]
  21. OCTREOIDE INJ [Concomitant]
  22. ONDANSETRON TAB ODT [Concomitant]
  23. PREDNISONE [Concomitant]
     Active Substance: PREDNISONE
  24. PROCHLORPER TAB [Concomitant]
  25. SOMATULINE INJ [Concomitant]
  26. SPIRONOLACT TAB [Concomitant]
  27. VITAMIN  D CAP [Concomitant]

REACTIONS (1)
  - Infection [None]
